FAERS Safety Report 5612086-7 (Version None)
Quarter: 2008Q1

REPORT INFORMATION
  Report Type: 
  Country: None (occurrence: None)
  Receive Date: 20080128
  Receipt Date: 20080117
  Transmission Date: 20080703
  Serious: Yes (Hospitalization)
  Sender: FDA-Public Use
  Company Number: GXKR2008CH01019

PATIENT
  Age: 48 Year
  Sex: Female
  Weight: 86 kg

DRUGS (1)
  1. AMOXICILLIN-CLAVULANIC ACID (NGX) (AMOXICILLIN, CLAVULANTE) UNKNOWN [Suspect]
     Indication: DIVERTICULITIS
     Dosage: 2 G, OD, ORAL
     Route: 048
     Dates: start: 20071213, end: 20071215

REACTIONS (7)
  - CYANOSIS [None]
  - EOSINOPHILIA [None]
  - FACE OEDEMA [None]
  - LEUKOCYTOCLASTIC VASCULITIS [None]
  - LEUKOCYTOSIS [None]
  - PRURITUS [None]
  - RASH GENERALISED [None]
